FAERS Safety Report 11896984 (Version 3)
Quarter: 2016Q1

REPORT INFORMATION
  Report Type: Spontaneous
  Country: US (occurrence: US)
  Receive Date: 20160107
  Receipt Date: 20160215
  Transmission Date: 20160526
  Serious: No
  Sender: FDA-Public Use
  Company Number: US-GLAXOSMITHKLINE-US2015GSK183684

PATIENT
  Sex: Female

DRUGS (1)
  1. ADVAIR DISKUS [Suspect]
     Active Substance: FLUTICASONE PROPIONATE\SALMETEROL XINAFOATE
     Indication: CHRONIC OBSTRUCTIVE PULMONARY DISEASE
     Dosage: UNK

REACTIONS (6)
  - Nasal congestion [Unknown]
  - Gastrooesophageal reflux disease [Unknown]
  - Speech rehabilitation [Not Recovered/Not Resolved]
  - Cough [Unknown]
  - Sinus disorder [Unknown]
  - Dysphonia [Unknown]
